FAERS Safety Report 6094954-8 (Version None)
Quarter: 2009Q1

REPORT INFORMATION
  Report Type: 
  Country: None (occurrence: None)
  Receive Date: 20090227
  Receipt Date: 20090226
  Transmission Date: 20090719
  Serious: Yes (Other)
  Sender: FDA-Public Use
  Company Number: US-PFIZER INC-2009155412

PATIENT
  Sex: Male
  Weight: 82.993 kg

DRUGS (5)
  1. LIPITOR [Suspect]
     Indication: HYPERCHOLESTEROLAEMIA
     Dates: start: 20080801
  2. LIPITOR [Suspect]
     Indication: CARDIOMYOPATHY
  3. TRAMADOL HYDROCHLORIDE [Suspect]
  4. VICODIN [Suspect]
  5. ANDROGEL [Concomitant]

REACTIONS (5)
  - CONSTIPATION [None]
  - FATIGUE [None]
  - MUSCULAR WEAKNESS [None]
  - MYALGIA [None]
  - PARESIS [None]
